FAERS Safety Report 5308892-9 (Version None)
Quarter: 2007Q2

REPORT INFORMATION
  Report Type: 
  Country: None (occurrence: None)
  Receive Date: 20070426
  Receipt Date: 20070416
  Transmission Date: 20071010
  Serious: Yes (Hospitalization)
  Sender: FDA-Public Use
  Company Number: US-AMGEN-US219734

PATIENT
  Age: 70 Year
  Sex: Male
  Weight: 94.4 kg

DRUGS (3)
  1. VECTIBIX [Suspect]
     Indication: COLORECTAL CANCER
     Route: 042
     Dates: start: 20070326, end: 20070409
  2. IRINOTECAN HCL [Concomitant]
     Route: 065
     Dates: start: 20060101
  3. ERBITUX [Concomitant]
     Route: 065
     Dates: start: 20060101

REACTIONS (3)
  - BACK PAIN [None]
  - CHILLS [None]
  - DYSPNOEA [None]
